FAERS Safety Report 5948429-4 (Version None)
Quarter: 2008Q4

REPORT INFORMATION
  Report Type: 
  Country: None (occurrence: None)
  Receive Date: 20081111
  Receipt Date: 20081105
  Transmission Date: 20090506
  Serious: Yes (Hospitalization)
  Sender: FDA-Public Use
  Company Number: JP-BRISTOL-MYERS SQUIBB COMPANY-14348973

PATIENT
  Age: 60 Year
  Sex: Female
  Weight: 49 kg

DRUGS (8)
  1. ABATACEPT [Suspect]
     Indication: RHEUMATOID ARTHRITIS
     Dosage: INTERRUPTED ON 27AUG2008
     Route: 041
     Dates: start: 20071219
  2. RHEUMATREX [Suspect]
     Indication: RHEUMATOID ARTHRITIS
     Dosage: CAPS; STARTED PRIOR TO OBTAINING IC
     Route: 048
     Dates: end: 20080919
  3. PREDNISOLONE [Concomitant]
     Indication: RHEUMATOID ARTHRITIS
     Dosage: TABS
     Route: 048
     Dates: end: 20080919
  4. LOXONIN [Concomitant]
     Indication: RHEUMATOID ARTHRITIS
     Dosage: TAB; AS NECESSARY (12MAR2008 - 24SEP2008)
     Route: 048
     Dates: end: 20080924
  5. MILTAX [Concomitant]
     Indication: RHEUMATOID ARTHRITIS
     Route: 061
     Dates: end: 20080924
  6. GASTER D [Concomitant]
     Indication: RHEUMATOID ARTHRITIS
     Dosage: TABS
     Route: 048
     Dates: end: 20080924
  7. BENET [Concomitant]
     Indication: OSTEOPOROSIS
     Dosage: TABS
     Route: 048
     Dates: end: 20080924
  8. MEVALOTIN [Concomitant]
     Indication: HYPERLIPIDAEMIA
     Dosage: TAB STARTED PRIOR TO OBTAINING IC
     Route: 048
     Dates: end: 20080924

REACTIONS (1)
  - PYREXIA [None]
